FAERS Safety Report 6073109-7 (Version None)
Quarter: 2009Q1

REPORT INFORMATION
  Report Type: 
  Country: None (occurrence: None)
  Receive Date: 20090211
  Receipt Date: 20090130
  Transmission Date: 20090719
  Serious: Yes (Other)
  Sender: FDA-Public Use
  Company Number: DK-JNJFOC-20081204750

PATIENT
  Sex: Male
  Weight: 91 kg

DRUGS (7)
  1. REMICADE [Suspect]
     Indication: PSORIATIC ARTHROPATHY
     Route: 042
  2. REMICADE [Suspect]
     Indication: SPONDYLOARTHROPATHY
     Route: 042
  3. NEXIUM [Concomitant]
  4. ASACOL [Concomitant]
  5. CALCIUM [Concomitant]
  6. CODEINE [Concomitant]
  7. PINEX [Concomitant]

REACTIONS (1)
  - DERMATITIS ATOPIC [None]
